FAERS Safety Report 6348979-5 (Version None)
Quarter: 2009Q3

REPORT INFORMATION
  Report Type: 
  Country: None (occurrence: None)
  Receive Date: 20090908
  Receipt Date: 20090901
  Transmission Date: 20100115
  Serious: Yes (Hospitalization)
  Sender: FDA-Public Use
  Company Number: CLOF-1000647

PATIENT
  Age: 58 Year
  Sex: Female
  Weight: 82.4 kg

DRUGS (20)
  1. CLOLAR [Suspect]
     Indication: ACUTE MYELOID LEUKAEMIA
     Dosage: 82 MG, QDX5, INTRAVENOUS
     Route: 042
     Dates: start: 20090609, end: 20090613
  2. BUSULFAN        (BUSULFAN) [Suspect]
     Indication: ACUTE MYELOID LEUKAEMIA
     Dosage: 240 MG, QDX2, INTRAVENOUS 330 MG, QDX2, INTRAVENOUS
     Route: 042
     Dates: start: 20090610, end: 20090611
  3. BUSULFAN        (BUSULFAN) [Suspect]
     Indication: ACUTE MYELOID LEUKAEMIA
     Dosage: 240 MG, QDX2, INTRAVENOUS 330 MG, QDX2, INTRAVENOUS
     Route: 042
     Dates: start: 20090612, end: 20090613
  4. ENBREL [Concomitant]
  5. RITUXAN [Concomitant]
  6. ACYCLOVIR [Concomitant]
  7. ADVAIR DISKUS 100/50 [Concomitant]
  8. ATIVAN [Concomitant]
  9. BUPROPION HCL [Concomitant]
  10. COMPAZINE [Concomitant]
  11. HYDROCORTISONE (SALICYLIC ACID) [Concomitant]
  12. LEVAQUIN [Concomitant]
  13. LISINOPRIL (LISINOPRIL DIHYDRATE) [Concomitant]
  14. MAGNESIUM SULFATE [Concomitant]
  15. METOPROLOL TARTRATE [Concomitant]
  16. PROTONIX [Concomitant]
  17. RESTASIS (CICLOSPORIN) [Concomitant]
  18. TACROLIMUS [Concomitant]
  19. URSODIOL [Concomitant]
  20. VFEND [Concomitant]

REACTIONS (7)
  - ACTIVITIES OF DAILY LIVING IMPAIRED [None]
  - HAEMATOCRIT DECREASED [None]
  - HAEMOGLOBIN DECREASED [None]
  - OBLITERATIVE BRONCHIOLITIS [None]
  - PLATELET COUNT DECREASED [None]
  - RED BLOOD CELL COUNT DECREASED [None]
  - WHITE BLOOD CELL COUNT DECREASED [None]
